FAERS Safety Report 13873255 (Version 3)
Quarter: 2017Q4

REPORT INFORMATION
  Report Type: Spontaneous
  Country: US (occurrence: US)
  Receive Date: 20170816
  Receipt Date: 20171013
  Transmission Date: 20180320
  Serious: No
  Sender: FDA-Public Use
  Company Number: US-GE HEALTHCARE LIFE SCIENCES-2017CSU002238

PATIENT
  Age: 28 Year
  Sex: Female

DRUGS (6)
  1. PROTONIX                           /00661201/ [Concomitant]
     Active Substance: OMEPRAZOLE
     Dosage: 40 MG, BID
     Dates: end: 20170719
  2. PRENATAL VITAMINS                  /02014401/ [Suspect]
     Active Substance: VITAMINS
     Dosage: 1 DF, QD
     Dates: end: 20170719
  3. EXCEDRIN MIGRAINE [Suspect]
     Active Substance: ACETAMINOPHEN\ASPIRIN\CAFFEINE
     Dosage: 2 DF, PRN
     Dates: end: 20170719
  4. ZYRTEC [Suspect]
     Active Substance: CETIRIZINE HYDROCHLORIDE
     Dosage: 10 MG, QD
     Dates: end: 20170719
  5. SODIUM IODIDE (123I) [Suspect]
     Active Substance: SODIUM IODIDE I-123
     Indication: HYPERTHYROIDISM
     Dosage: 10.767 MBQ (291 MICROCURIES), SINGLE
     Route: 048
     Dates: start: 20170720, end: 20170720
  6. PROBIOTIC                          /06395501/ [Suspect]
     Active Substance: BIFIDOBACTERIUM ANIMALIS LACTIS
     Dosage: UNK UNK, QD
     Dates: end: 20170619

REACTIONS (5)
  - Throat irritation [Recovered/Resolved]
  - Anxiety [Recovered/Resolved]
  - Pharyngeal oedema [Recovered/Resolved]
  - Oropharyngeal pain [Recovered/Resolved]
  - Radioisotope scan abnormal [Recovered/Resolved]

NARRATIVE: CASE EVENT DATE: 20170720
